FAERS Safety Report 9456227 (Version 1)
Quarter: 2013Q3

REPORT INFORMATION
  Report Type: Spontaneous
  Country: GB (occurrence: GB)
  Receive Date: 20130813
  Receipt Date: 20130813
  Transmission Date: 20140515
  Serious: Yes (Life-Threatening, Hospitalization, Disabling, Other)
  Sender: FDA-Public Use
  Company Number: GB-WATSON-2013-14128

PATIENT
  Age: 67 Year
  Sex: Female

DRUGS (10)
  1. PIOGLITAZONE (UNKNOWN) [Suspect]
     Indication: TYPE 2 DIABETES MELLITUS
     Dosage: 45 MG, UNK
     Route: 048
     Dates: end: 20130624
  2. FERROUS FUMARATE 324 [Concomitant]
     Indication: PRODUCT USED FOR UNKNOWN INDICATION
     Dosage: UNK, UNKNOWN
     Route: 065
  3. RAMIPRIL [Concomitant]
     Indication: PRODUCT USED FOR UNKNOWN INDICATION
     Dosage: UNK, UNKNOWN
     Route: 065
  4. LEVOTHYROXINE SODIUM [Concomitant]
     Indication: PRODUCT USED FOR UNKNOWN INDICATION
     Dosage: UNK, UNKNOWN
     Route: 065
  5. ATORVASTATIN [Concomitant]
     Indication: PRODUCT USED FOR UNKNOWN INDICATION
     Dosage: UNK, UNKNOWN
     Route: 065
  6. ARIPIPRAZOLE [Concomitant]
     Indication: PRODUCT USED FOR UNKNOWN INDICATION
     Route: 065
  7. FLUOXETINE [Concomitant]
     Indication: PRODUCT USED FOR UNKNOWN INDICATION
     Dosage: UNK, UNKNOWN
     Route: 065
  8. METFORMIN [Concomitant]
     Indication: PRODUCT USED FOR UNKNOWN INDICATION
     Dosage: UNK, UNKNOWN
     Route: 065
  9. CREON 10 [Concomitant]
     Indication: PRODUCT USED FOR UNKNOWN INDICATION
     Dosage: UNK, UNKNOWN
     Route: 065
  10. ADCAL D3 [Concomitant]
     Indication: PRODUCT USED FOR UNKNOWN INDICATION
     Dosage: UNK, UNKNOWN
     Route: 065

REACTIONS (10)
  - Pelvic mass [Unknown]
  - Bladder neoplasm [Unknown]
  - Kidney enlargement [Unknown]
  - Metastases to lung [Unknown]
  - Cells in urine [Unknown]
  - Anaemia [Unknown]
  - Renal failure acute [Unknown]
  - Abdominal discomfort [Unknown]
  - Malignant neoplasm of unknown primary site [Unknown]
  - Metastasis [Unknown]
